FAERS Safety Report 10412060 (Version 1)
Quarter: 2014Q2

REPORT INFORMATION
  Report Type: Spontaneous
  Country: US (occurrence: None)
  Receive Date: 20140604
  Receipt Date: 20140604
  Transmission Date: 20141212
  Serious: Yes (Hospitalization)
  Sender: FDA-Public Use
  Company Number: 20130116CINRY3853

PATIENT
  Age: 18 Year
  Sex: Female

DRUGS (3)
  1. CINRYZE [Suspect]
     Indication: HEREDITARY ANGIOEDEMA
  2. CINRYZE [Suspect]
     Indication: PROPHYLAXIS
  3. PRENATAL VITAMINS (ASCORBIC ACID W/BIOTIN/MINERALS/NOS/NICOTINIC) [Concomitant]

REACTIONS (3)
  - Dehydration [None]
  - Pregnancy [None]
  - Exposure during pregnancy [None]
